FAERS Safety Report 7812240-X (Version None)
Quarter: 2011Q4

REPORT INFORMATION
  Report Type: 
  Country: None (occurrence: None)
  Receive Date: 20111013
  Receipt Date: 20110930
  Transmission Date: 20120403
  Serious: Yes (Other)
  Sender: FDA-Public Use
  Company Number: US-BAYER-2011-082361

PATIENT
  Age: 21 Year
  Sex: Female
  Weight: 74.83 kg

DRUGS (3)
  1. PROTONIX [Concomitant]
  2. BENTYL [Concomitant]
     Dosage: 10 MG, UNK
  3. YAZ [Suspect]
     Indication: CONTRACEPTION
     Dosage: UNK
     Dates: start: 20080101, end: 20090701

REACTIONS (4)
  - GALLBLADDER INJURY [None]
  - INJURY [None]
  - PAIN [None]
  - CHOLECYSTITIS ACUTE [None]
